FAERS Safety Report 9175555 (Version 2)
Quarter: 2013Q1

REPORT INFORMATION
  Report Type: Spontaneous
  Country: US (occurrence: US)
  Receive Date: 20130320
  Receipt Date: 20130322
  Transmission Date: 20140127
  Serious: Yes (Death, Other)
  Sender: FDA-Public Use
  Company Number: US-JNJFOC-20040901310

PATIENT
  Age: 47 Year
  Sex: Female

DRUGS (3)
  1. IBUPROFEN [Suspect]
     Indication: SUICIDE ATTEMPT
  2. FLUOXETINE [Suspect]
     Indication: SUICIDE ATTEMPT
  3. QUETIAPINE [Suspect]
     Indication: SUICIDE ATTEMPT

REACTIONS (8)
  - Cardiac arrest [Fatal]
  - Completed suicide [Fatal]
  - Intentional overdose [Fatal]
  - Hyperhidrosis [Fatal]
  - Coma scale abnormal [Fatal]
  - Tachycardia [Fatal]
  - Convulsion [Fatal]
  - Hypotension [Fatal]
